FAERS Safety Report 23787482 (Version 1)
Quarter: 2024Q2

REPORT INFORMATION
  Report Type: Spontaneous
  Country: US (occurrence: US)
  Receive Date: 20240426
  Receipt Date: 20240426
  Transmission Date: 20240715
  Serious: Yes (Death)
  Sender: FDA-Public Use
  Company Number: US-Genexa Inc. -2156089

PATIENT
  Age: 2 Month
  Weight: 5.9091 kg

DRUGS (1)
  1. GENEXA INFANTS PAIN AND FEVER [Suspect]
     Active Substance: ACETAMINOPHEN
     Indication: Pyrexia
     Route: 048
     Dates: start: 20240327, end: 20240327

REACTIONS (1)
  - Adverse event [Fatal]

NARRATIVE: CASE EVENT DATE: 20240328
